FAERS Safety Report 4488880-5 (Version None)
Quarter: 2004Q4

REPORT INFORMATION
  Report Type: 
  Country: None (occurrence: None)
  Receive Date: 20041029
  Receipt Date: 20041021
  Transmission Date: 20050328
  Serious: Yes (Life-Threatening, Hospitalization, Disabling)
  Sender: FDA-Public Use
  Company Number: US-MERCK-0410USA03356

PATIENT
  Age: 72 Year
  Sex: Female

DRUGS (2)
  1. VIOXX [Suspect]
     Indication: ARTHRITIS
     Route: 048
     Dates: end: 20011201
  2. ATENOLOL [Concomitant]
     Route: 065

REACTIONS (4)
  - DIFFICULTY IN WALKING [None]
  - HAEMORRHAGE [None]
  - HYPERTENSION [None]
  - OEDEMA PERIPHERAL [None]
